FAERS Safety Report 4952300-4 (Version None)
Quarter: 2006Q1

REPORT INFORMATION
  Report Type: 
  Country: None (occurrence: None)
  Receive Date: 20060320
  Receipt Date: 20060302
  Transmission Date: 20060701
  Serious: Yes (Hospitalization)
  Sender: FDA-Public Use
  Company Number: 2006000529

PATIENT
  Age: 58 Year
  Sex: Female
  Weight: 55.3 kg

DRUGS (12)
  1. ERLOTINIB (TABLET) [Suspect]
     Indication: BREAST CANCER METASTATIC
     Dosage: 100 MG (QD), ORAL
     Route: 048
     Dates: start: 20060104, end: 20060129
  2. EVEROLIMUS (EVEROLIMUS) (TABLET) [Suspect]
     Indication: BREAST CANCER METASTATIC
     Dosage: 2.5 MG (QD), ORAL
     Route: 048
     Dates: start: 20060104, end: 20060129
  3. HYDROCODONE BITARTRATE [Concomitant]
  4. TUSSIONEX (TUSSIONEX ^PENNWALT^) [Concomitant]
  5. PHENYLTOLOXOAMINE (PHENYLTOLOXAMINE) [Concomitant]
  6. LEVAQUIN [Concomitant]
  7. IRON (IRON) [Concomitant]
  8. CALTRATE (CALICUM CARBONATE) [Concomitant]
  9. MULTIVITAMIN [Concomitant]
  10. ZOMETA [Concomitant]
  11. PROCRIT [Concomitant]
  12. TAMOXIFEN CITRATE [Concomitant]

REACTIONS (3)
  - HAEMOGLOBIN DECREASED [None]
  - PERICARDIAL EFFUSION [None]
  - WHITE BLOOD CELL COUNT INCREASED [None]
